FAERS Safety Report 7637899-1 (Version None)
Quarter: 2011Q3

REPORT INFORMATION
  Report Type: 
  Country: None (occurrence: None)
  Receive Date: 20110720
  Receipt Date: 20110705
  Transmission Date: 20111222
  Serious: Yes (Other)
  Sender: FDA-Public Use
  Company Number: AUR-APU-2011-04108

PATIENT
  Age: 32 Year
  Sex: Female

DRUGS (9)
  1. INTERFERON ALFA [Suspect]
     Indication: PRODUCT USED FOR UNKNOWN INDICATION
     Dosage: (3-7 TIMES PER WEEK)
  2. INTERFERON [Suspect]
     Indication: PRODUCT USED FOR UNKNOWN INDICATION
  3. PEGINTERFERON ALPHA (PEGINTERFERON) [Suspect]
     Indication: PRODUCT USED FOR UNKNOWN INDICATION
     Dosage: 25.7143 MCG (180 MCG,1 IN 1 WK),INTRAMUSCULAR
     Route: 030
     Dates: start: 20101105
  4. RIBASPHERE [Suspect]
     Indication: PRODUCT USED FOR UNKNOWN INDICATION
  5. RIBAVIRIN [Suspect]
     Indication: HEPATITIS C
     Dosage: (800 MG,1 D),ORAL
     Route: 048
     Dates: start: 20100511, end: 20101118
  6. COPEGUS [Suspect]
     Indication: HEPATITIS C
  7. RIBAVIRIN [Suspect]
     Indication: PRODUCT USED FOR UNKNOWN INDICATION
  8. REBETOL [Suspect]
     Indication: HEPATITIS C
  9. REBETRON [Suspect]
     Indication: HEPATITIS C

REACTIONS (3)
  - TRISOMY 21 [None]
  - MATERNAL DRUGS AFFECTING FOETUS [None]
  - ALPHA 1 FOETOPROTEIN INCREASED [None]
